FAERS Safety Report 9432350 (Version 2)
Quarter: 2014Q2

REPORT INFORMATION
  Report Type: Spontaneous
  Country: IT (occurrence: IT)
  Receive Date: 20130731
  Receipt Date: 20140416
  Transmission Date: 20141212
  Serious: Yes (Other)
  Sender: FDA-Public Use
  Company Number: IT-PFIZER INC-2013222473

PATIENT
  Age: 75 Year
  Sex: Male

DRUGS (3)
  1. XANAX [Suspect]
     Dosage: A THIRD OF THE BOTTLE
     Route: 048
     Dates: start: 20130107, end: 20130107
  2. TRITTICO [Concomitant]
     Dosage: UNK
  3. TRIATEC [Concomitant]
     Dosage: UNK

REACTIONS (4)
  - Accidental exposure to product [Recovering/Resolving]
  - Loss of consciousness [Recovering/Resolving]
  - Vertigo [Recovering/Resolving]
  - Somnolence [Recovering/Resolving]
